FAERS Safety Report 24334487 (Version 1)
Quarter: 2024Q3

REPORT INFORMATION
  Report Type: Spontaneous
  Country: US (occurrence: US)
  Receive Date: 20240918
  Receipt Date: 20240918
  Transmission Date: 20241017
  Serious: Yes (Life-Threatening)
  Sender: JOHNSON AND JOHNSON
  Company Number: US-JNJFOC-20240927611

PATIENT
  Age: 48 Year
  Sex: Female

DRUGS (1)
  1. ACETAMINOPHEN [Suspect]
     Active Substance: ACETAMINOPHEN
     Indication: Product used for unknown indication
     Route: 065

REACTIONS (7)
  - Unresponsive to stimuli [Unknown]
  - Respiratory failure [Unknown]
  - Septic shock [Unknown]
  - Hypotension [Unknown]
  - Acute hepatic failure [Unknown]
  - Overdose [Unknown]
  - Ischaemic hepatitis [Unknown]
